FAERS Safety Report 8122079-6 (Version None)
Quarter: 2012Q1

REPORT INFORMATION
  Report Type: 
  Country: None (occurrence: None)
  Receive Date: 20120208
  Receipt Date: 20120105
  Transmission Date: 20120608
  Serious: Yes (Hospitalization)
  Sender: FDA-Public Use
  Company Number: US-CELGENEUS-163-21880-11093174

PATIENT
  Sex: Male

DRUGS (21)
  1. LANTUS [Concomitant]
     Dosage: 30 UNITS
     Route: 065
  2. DIAZEPAM [Concomitant]
     Dosage: 5 MILLIGRAM
     Route: 065
  3. REVLIMID [Suspect]
     Dosage: 10 MILLIGRAM
     Route: 048
     Dates: start: 20110822, end: 20110920
  4. TACROLIMUS [Concomitant]
     Dosage: 1 MILLIGRAM
     Route: 065
  5. ONDANSETRON [Concomitant]
     Dosage: 8 MILLIGRAM
     Route: 065
  6. OXYBUTININ XL [Concomitant]
     Dosage: 10 MILLIGRAM
     Route: 065
  7. FLUCONAZOLE [Concomitant]
     Dosage: 400 MILLIGRAM
     Route: 048
  8. DRONABINOL [Concomitant]
     Dosage: 2.5 MILLIGRAM
     Route: 065
  9. PREDNISONE [Concomitant]
     Route: 065
  10. LORAZEPAM [Concomitant]
     Dosage: 1 MILLIGRAM
     Route: 065
  11. DAPSONE [Concomitant]
     Dosage: 100 MILLIGRAM
     Route: 065
  12. TAMSULOSIN HCL [Concomitant]
     Dosage: .4 MILLIGRAM
     Route: 065
  13. ACYCLOVIR [Concomitant]
     Dosage: 400 MILLIGRAM
     Route: 065
  14. FLOMAX [Concomitant]
     Dosage: .4 MILLIGRAM
     Route: 065
  15. OMEPRAZOLE [Concomitant]
     Dosage: 20 MILLIGRAM
     Route: 065
  16. MAG OXIDE [Concomitant]
     Dosage: 400 MILLIGRAM
     Route: 065
  17. ZOLPIDEM [Concomitant]
     Dosage: 10 MILLIGRAM
     Route: 065
  18. ALLOPURINOL [Concomitant]
     Dosage: 300 MILLIGRAM
     Route: 065
  19. INSULIN GLARGINE [Concomitant]
     Route: 065
  20. HYDROMORPHONE HCL [Concomitant]
     Dosage: 1 MILLIGRAM
     Route: 065
  21. TRIAMCINOLONE [Concomitant]
     Dosage: .1 PERCENT
     Route: 065

REACTIONS (1)
  - GRAFT VERSUS HOST DISEASE [None]
